FAERS Safety Report 6640988-1 (Version None)
Quarter: 2010Q1

REPORT INFORMATION
  Report Type: 
  Country: None (occurrence: None)
  Receive Date: 20100318
  Receipt Date: 20100316
  Transmission Date: 20100710
  Serious: Yes (Other)
  Sender: FDA-Public Use
  Company Number: A0850507A

PATIENT
  Sex: Female

DRUGS (3)
  1. TYKERB [Suspect]
     Dosage: 1250MG PER DAY
     Route: 048
     Dates: start: 20091021
  2. XELODA [Concomitant]
     Route: 065
  3. EFFEXOR [Concomitant]
     Route: 065

REACTIONS (1)
  - METASTASES TO BONE [None]
